FAERS Safety Report 12508377 (Version 1)
Quarter: 2016Q2

REPORT INFORMATION
  Report Type: Report from Study
  Country: US (occurrence: US)
  Receive Date: 20160629
  Receipt Date: 20160629
  Transmission Date: 20160815
  Serious: Yes (Hospitalization)
  Sender: FDA-Public Use
  Company Number: US-BAYER-2016-117453

PATIENT
  Age: 56 Year
  Sex: Female

DRUGS (1)
  1. STIVARGA [Suspect]
     Active Substance: REGORAFENIB
     Indication: COLON CANCER METASTATIC
     Dosage: 160 MG DAILY
     Route: 048
     Dates: start: 20160609, end: 20160616

REACTIONS (13)
  - Decreased appetite [None]
  - Pain in extremity [None]
  - Blood potassium decreased [None]
  - Lethargy [None]
  - Platelet count decreased [None]
  - Bone pain [None]
  - Fatigue [None]
  - Blood glucose decreased [None]
  - Vomiting [None]
  - Dehydration [None]
  - Oedema peripheral [None]
  - Blood magnesium decreased [None]
  - Peripheral swelling [None]

NARRATIVE: CASE EVENT DATE: 201606
